FAERS Safety Report 21417332 (Version 1)
Quarter: 2022Q4

REPORT INFORMATION
  Report Type: Spontaneous
  Country: GB (occurrence: GB)
  Receive Date: 20221006
  Receipt Date: 20221006
  Transmission Date: 20230113
  Serious: Yes (Hospitalization)
  Sender: FDA-Public Use
  Company Number: GB-VERTEX PHARMACEUTICALS-2022-014691

PATIENT
  Sex: Female

DRUGS (3)
  1. ELEXACAFTOR\IVACAFTOR\TEZACAFTOR [Suspect]
     Active Substance: ELEXACAFTOR\IVACAFTOR\TEZACAFTOR
     Indication: Cystic fibrosis
     Dosage: 2 TABS (75 MG IVA/50MG TEZA/100MG ELEXA)AM
     Route: 048
  2. KALYDECO [Suspect]
     Active Substance: IVACAFTOR
     Indication: Cystic fibrosis
     Dosage: ONE TAB IN THE EVENING
     Route: 048
  3. COLISTIMETHATE SODIUM [Concomitant]
     Active Substance: COLISTIMETHATE SODIUM

REACTIONS (2)
  - Hospitalisation [Unknown]
  - Fatigue [Not Recovered/Not Resolved]

NARRATIVE: CASE EVENT DATE: 20220101
